FAERS Safety Report 14976748 (Version 2)
Quarter: 2018Q3

REPORT INFORMATION
  Report Type: Spontaneous
  Country: US (occurrence: US)
  Receive Date: 20180605
  Receipt Date: 20180730
  Transmission Date: 20181010
  Serious: No
  Sender: FDA-Public Use
  Company Number: US-GLAXOSMITHKLINE-US2018097705

PATIENT
  Age: 46 Year
  Sex: Female
  Weight: 113 kg

DRUGS (1)
  1. BENLYSTA [Suspect]
     Active Substance: BELIMUMAB
     Indication: SYSTEMIC LUPUS ERYTHEMATOSUS
     Dosage: 920 MG, CYC
     Route: 042
     Dates: start: 201607

REACTIONS (2)
  - Product preparation error [Unknown]
  - Drug administration error [Unknown]

NARRATIVE: CASE EVENT DATE: 20180517
